FAERS Safety Report 19725912 (Version 1)
Quarter: 2021Q3

REPORT INFORMATION
  Report Type: Spontaneous
  Country: US (occurrence: US)
  Receive Date: 20210819
  Receipt Date: 20210819
  Transmission Date: 20211014
  Serious: No
  Sender: FDA-Public Use
  Company Number: US-MANNKIND CORPORATION-2021MK000074

PATIENT
  Age: 68 Year
  Sex: Male

DRUGS (1)
  1. AFREZZA [Suspect]
     Active Substance: INSULIN HUMAN
     Indication: PRODUCT USED FOR UNKNOWN INDICATION
     Dates: start: 20210509

REACTIONS (5)
  - Chest discomfort [Unknown]
  - Anxiety [Unknown]
  - Discomfort [Unknown]
  - Feeling jittery [Unknown]
  - Insomnia [Unknown]

NARRATIVE: CASE EVENT DATE: 20210510
